FAERS Safety Report 7635897-5 (Version None)
Quarter: 2011Q3

REPORT INFORMATION
  Report Type: 
  Country: None (occurrence: None)
  Receive Date: 20110719
  Receipt Date: 20110708
  Transmission Date: 20111222
  Serious: Yes (Other)
  Sender: FDA-Public Use
  Company Number: 2011SP031961

PATIENT
  Age: 36 Year
  Sex: Male

DRUGS (2)
  1. RIBAVIRIN [Suspect]
     Indication: PRODUCT USED FOR UNKNOWN INDICATION
  2. PEG-INTRON [Suspect]
     Indication: HEPATITIS C
     Dosage: 0.5 MG;QW
     Dates: start: 20110201

REACTIONS (4)
  - ABNORMAL BEHAVIOUR [None]
  - CHEST PAIN [None]
  - AGGRESSION [None]
  - LEGAL PROBLEM [None]
